FAERS Safety Report 7737240-X (Version None)
Quarter: 2011Q3

REPORT INFORMATION
  Report Type: 
  Country: None (occurrence: None)
  Receive Date: 20110908
  Receipt Date: 20110831
  Transmission Date: 20111222
  Serious: Yes (Other)
  Sender: FDA-Public Use
  Company Number: CA-JNJFOC-20110901766

PATIENT
  Sex: Male
  Weight: 84.2 kg

DRUGS (3)
  1. TYLENOL-500 [Concomitant]
     Indication: PAIN
  2. REMICADE [Suspect]
     Indication: PSORIASIS
     Route: 042
     Dates: start: 20080815
  3. REMICADE [Suspect]
     Dosage: A TOTAL OF 24 INFUSIONS
     Route: 042
     Dates: start: 20110829

REACTIONS (3)
  - INJURY [None]
  - INTERVERTEBRAL DISC PROTRUSION [None]
  - NERVE INJURY [None]
